FAERS Safety Report 14491869 (Version 2)
Quarter: 2018Q3

REPORT INFORMATION
  Report Type: Report from Study
  Country: IL (occurrence: IL)
  Receive Date: 20180206
  Receipt Date: 20180830
  Transmission Date: 20181010
  Serious: Yes (Death, Hospitalization, Other)
  Sender: FDA-Public Use
  Company Number: IL-BIOGEN-2018BI00521407

PATIENT
  Age: 49 Year
  Sex: Male

DRUGS (1)
  1. TYSABRI [Suspect]
     Active Substance: NATALIZUMAB
     Indication: MULTIPLE SCLEROSIS
     Route: 042
     Dates: start: 20171113, end: 20171206

REACTIONS (4)
  - General physical health deterioration [Not Recovered/Not Resolved]
  - Dysphagia [Unknown]
  - Depressed level of consciousness [Unknown]
  - Death [Fatal]
